FAERS Safety Report 15805704 (Version 3)
Quarter: 2019Q1

REPORT INFORMATION
  Report Type: Spontaneous
  Country: CN (occurrence: CN)
  Receive Date: 20190110
  Receipt Date: 20190118
  Transmission Date: 20190417
  Serious: Yes (Other)
  Sender: FDA-Public Use
  Company Number: CN-ASTRAZENECA-2019SE02102

PATIENT
  Age: 76 Year
  Sex: Female

DRUGS (8)
  1. TRADITIONAL CHINESE MEDICINE NOS [Concomitant]
     Active Substance: HERBALS
  2. CEPHALOSPORIN C [Concomitant]
     Active Substance: CEPHALOSPORIN C
  3. PAEONOL [Concomitant]
  4. TAGRISSO [Suspect]
     Active Substance: OSIMERTINIB
     Indication: LUNG NEOPLASM MALIGNANT
     Route: 048
     Dates: start: 201811
  5. BETALOC [Suspect]
     Active Substance: METOPROLOL TARTRATE
     Dosage: (THE PATIENT STATED THAT IT WAS NOT THE PRODUCT OF ASTRAZENECA)
     Route: 065
  6. TRADITIONAL CHINESE MEDICINE NOS [Concomitant]
     Active Substance: HERBALS
  7. IRESSA [Suspect]
     Active Substance: GEFITINIB
     Indication: LUNG NEOPLASM MALIGNANT
     Route: 048
     Dates: start: 20160111
  8. BAIXIANG [Concomitant]

REACTIONS (4)
  - Blister [Recovering/Resolving]
  - Metastases to central nervous system [Recovering/Resolving]
  - Rash [Recovering/Resolving]
  - Drug resistance [Not Recovered/Not Resolved]

NARRATIVE: CASE EVENT DATE: 201811
